FAERS Safety Report 12261900 (Version 1)
Quarter: 2016Q2

REPORT INFORMATION
  Report Type: Spontaneous
  Country: US (occurrence: US)
  Receive Date: 20160413
  Receipt Date: 20160413
  Transmission Date: 20160815
  Serious: No
  Sender: FDA-Public Use
  Company Number: US-JNJFOC-20160309385

PATIENT
  Age: 63 Year
  Sex: Female
  Weight: 54.43 kg

DRUGS (3)
  1. PEPCID COMPLETE [Suspect]
     Active Substance: CALCIUM CARBONATE\FAMOTIDINE\MAGNESIUM HYDROXIDE
     Indication: ABDOMINAL PAIN UPPER
     Dosage: NIGHTLY
     Route: 048
  2. ADVIL [Concomitant]
     Active Substance: IBUPROFEN
     Indication: ANALGESIC THERAPY
     Route: 065
  3. PEPCID COMPLETE [Suspect]
     Active Substance: CALCIUM CARBONATE\FAMOTIDINE\MAGNESIUM HYDROXIDE
     Route: 048

REACTIONS (4)
  - Dental caries [Not Recovered/Not Resolved]
  - Product use issue [Not Recovered/Not Resolved]
  - Off label use [Not Recovered/Not Resolved]
  - Product label issue [Unknown]
